FAERS Safety Report 18991498 (Version 1)
Quarter: 2021Q1

REPORT INFORMATION
  Report Type: Spontaneous
  Country: FI (occurrence: FI)
  Receive Date: 20210310
  Receipt Date: 20210310
  Transmission Date: 20210420
  Serious: Yes (Other)
  Sender: FDA-Public Use
  Company Number: FI-TEVA-2021-FI-1887327

PATIENT
  Age: 74 Year
  Sex: Female

DRUGS (2)
  1. ERDOPECT [Suspect]
     Active Substance: ERDOSTEINE
     Indication: COUGH
     Dosage: 600 MILLIGRAM DAILY;
     Route: 048
     Dates: start: 20201218, end: 20201225
  2. FLUTICASONE. [Suspect]
     Active Substance: FLUTICASONE
     Route: 045
     Dates: start: 20201218, end: 20201225

REACTIONS (3)
  - Rash erythematous [Not Recovered/Not Resolved]
  - Skin burning sensation [Not Recovered/Not Resolved]
  - Burn oral cavity [Not Recovered/Not Resolved]

NARRATIVE: CASE EVENT DATE: 20201225
